FAERS Safety Report 5489076-0 (Version None)
Quarter: 2007Q4

REPORT INFORMATION
  Report Type: 
  Country: None (occurrence: None)
  Receive Date: 20071018
  Receipt Date: 20071015
  Transmission Date: 20080405
  Serious: Yes (Hospitalization)
  Sender: FDA-Public Use
  Company Number: US-JNJFOC-20070506454

PATIENT
  Age: 5 Year
  Sex: Female

DRUGS (1)
  1. INVEGA [Suspect]
     Indication: ACCIDENTAL DRUG INTAKE BY CHILD

REACTIONS (5)
  - ACCIDENTAL DRUG INTAKE BY CHILD [None]
  - DYSTONIA [None]
  - FACIAL PALSY [None]
  - HEMIPARESIS [None]
  - MIOSIS [None]
